FAERS Safety Report 4813168-X (Version None)
Quarter: 2005Q4

REPORT INFORMATION
  Report Type: 
  Country: None (occurrence: None)
  Receive Date: 20051028
  Receipt Date: 20050620
  Transmission Date: 20060501
  Serious: No
  Sender: FDA-Public Use
  Company Number: US-GLAXOSMITHKLINE-A0563714A

PATIENT
  Age: 75 Year
  Sex: Male

DRUGS (3)
  1. ADVAIR DISKUS 100/50 [Suspect]
     Dosage: 1PUFF TWICE PER DAY
     Route: 055
     Dates: start: 20050101
  2. SPIRIVA [Concomitant]
     Route: 065
  3. QUININE [Concomitant]
     Route: 065

REACTIONS (4)
  - DYSPHAGIA [None]
  - DYSPNOEA [None]
  - FATIGUE [None]
  - SWOLLEN TONGUE [None]
